FAERS Safety Report 9845320 (Version 1)
Quarter: 2014Q1

REPORT INFORMATION
  Report Type: Spontaneous
  Country: IE (occurrence: IE)
  Receive Date: 20140127
  Receipt Date: 20140127
  Transmission Date: 20141002
  Serious: Yes (Other)
  Sender: FDA-Public Use
  Company Number: IE-009507513-1401IRL010425

PATIENT
  Sex: 0

DRUGS (2)
  1. POSACONAZOLE [Suspect]
     Indication: ZYGOMYCOSIS
     Route: 048
  2. AMPHOTERICIN B [Suspect]
     Indication: ZYGOMYCOSIS
     Route: 042

REACTIONS (2)
  - Drug-induced liver injury [Unknown]
  - Renal failure [Unknown]
